FAERS Safety Report 7789706-4 (Version None)
Quarter: 2011Q3

REPORT INFORMATION
  Report Type: 
  Country: None (occurrence: None)
  Receive Date: 20110930
  Receipt Date: 20110928
  Transmission Date: 20111222
  Serious: Yes (Life-Threatening, Hospitalization)
  Sender: FDA-Public Use
  Company Number: US-B.I. PHARMACEUTICALS,INC./RIDGEFIELD-2011-BP-21749BP

PATIENT
  Age: 59 Year
  Sex: Male

DRUGS (7)
  1. AMIODARONE HCL [Concomitant]
     Dosage: 600 MG
  2. PREDNISONE [Concomitant]
     Dosage: 10 MG
  3. NAPROXEN [Concomitant]
     Dosage: 400 MG
  4. GLUCOSAMINE [Concomitant]
  5. VITAMIN TAB [Concomitant]
  6. PRADAXA [Suspect]
     Indication: ATRIAL FIBRILLATION
     Dosage: 300 MG
     Dates: end: 20110824
  7. IRON [Concomitant]

REACTIONS (1)
  - LOWER GASTROINTESTINAL HAEMORRHAGE [None]
